FAERS Safety Report 6994054-6 (Version None)
Quarter: 2010Q3

REPORT INFORMATION
  Report Type: 
  Country: None (occurrence: None)
  Receive Date: 20100917
  Receipt Date: 20100907
  Transmission Date: 20110219
  Serious: Yes (Other)
  Sender: FDA-Public Use
  Company Number: US-ABBOTT-10P-163-0667296-00

PATIENT
  Age: 27 Year
  Sex: Male

DRUGS (8)
  1. HUMIRA [Suspect]
     Indication: PSORIATIC ARTHROPATHY
     Dates: start: 20070101
  2. UNKNOWN ALCOHOL BASED TOPICAL MEDICATION [Concomitant]
     Indication: PRODUCT USED FOR UNKNOWN INDICATION
     Route: 061
  3. ADDERALL XR 10 [Concomitant]
     Indication: ATTENTION DEFICIT/HYPERACTIVITY DISORDER
  4. FLONASE [Concomitant]
     Indication: HYPERSENSITIVITY
  5. SEREVENT [Concomitant]
     Indication: HYPERSENSITIVITY
  6. ALBUTEROL [Concomitant]
     Indication: ASTHMA
  7. LEVOXYL [Concomitant]
     Indication: PRODUCT USED FOR UNKNOWN INDICATION
  8. ZYRTEC [Concomitant]
     Indication: HYPERSENSITIVITY

REACTIONS (6)
  - BLOOD COUNT ABNORMAL [None]
  - DRUG DOSE OMISSION [None]
  - HEADACHE [None]
  - MALAISE [None]
  - METAL POISONING [None]
  - NAUSEA [None]
